FAERS Safety Report 24056958 (Version 1)
Quarter: 2024Q3

REPORT INFORMATION
  Report Type: Spontaneous
  Country: GB (occurrence: GB)
  Receive Date: 20240706
  Receipt Date: 20240706
  Transmission Date: 20241016
  Serious: Yes (Death, Hospitalization, Other)
  Sender: GLAXOSMITHKLINE
  Company Number: GB-GLAXOSMITHKLINE-GB2024EME083586

PATIENT

DRUGS (9)
  1. ALBUTEROL [Suspect]
     Active Substance: ALBUTEROL
     Indication: Product used for unknown indication
     Dosage: 100 MIC/DOSE
  2. ESOMEPRAZOLE [Suspect]
     Active Substance: ESOMEPRAZOLE
     Indication: Product used for unknown indication
     Dosage: 40 MG
  3. GLYCOSAMINOGLYCANS\SALICYLIC ACID [Suspect]
     Active Substance: GLYCOSAMINOGLYCANS\SALICYLIC ACID
     Indication: Product used for unknown indication
     Dosage: UNK
  4. TRAMADOL [Suspect]
     Active Substance: TRAMADOL\TRAMADOL HYDROCHLORIDE
     Indication: Product used for unknown indication
     Dosage: 50 MG
  5. QUININE SULFATE [Suspect]
     Active Substance: QUININE SULFATE
     Indication: Product used for unknown indication
     Dosage: 300 MG
  6. ACETAMINOPHEN [Suspect]
     Active Substance: ACETAMINOPHEN
     Indication: Product used for unknown indication
     Dosage: 500 MG
  7. FUROSEMIDE [Suspect]
     Active Substance: FUROSEMIDE
     Indication: Product used for unknown indication
     Dosage: 40 MG
  8. ALLOPURINOL [Suspect]
     Active Substance: ALLOPURINOL
     Indication: Product used for unknown indication
     Dosage: 300 MG
  9. BECLOMETHASONE DIPROPIONATE\FORMOTEROL FUMARATE\GLYCOPYRROLATE [Suspect]
     Active Substance: BECLOMETHASONE DIPROPIONATE\FORMOTEROL FUMARATE\GLYCOPYRROLATE
     Indication: Product used for unknown indication
     Dosage: 87/5 MIC

REACTIONS (2)
  - Death [Fatal]
  - Hypomagnesaemia [Unknown]
